FAERS Safety Report 25666251 (Version 5)
Quarter: 2025Q4

REPORT INFORMATION
  Report Type: Report from Study
  Country: US (occurrence: None)
  Receive Date: 20250811
  Receipt Date: 20251113
  Transmission Date: 20260118
  Serious: Yes (Other)
  Sender: UCB
  Company Number: US-UCBSA-2025048332

PATIENT
  Age: 53 Year

DRUGS (2)
  1. BIMZELX [Suspect]
     Active Substance: BIMEKIZUMAB-BKZX
     Indication: Psoriatic arthropathy
     Dosage: 160 MILLIGRAM, EV 4 WEEKS
  2. VITAMIN B12 [Suspect]
     Active Substance: CYANOCOBALAMIN
     Indication: Product used for unknown indication
     Dosage: UNK

REACTIONS (8)
  - Thalassaemia [Recovered/Resolved]
  - Contusion [Recovered/Resolved]
  - Skin mass [Recovered/Resolved]
  - Vitamin B12 increased [Not Recovered/Not Resolved]
  - Pain in extremity [Recovering/Resolving]
  - COVID-19 [Recovering/Resolving]
  - Back pain [Recovering/Resolving]
  - Muscle strain [Recovering/Resolving]
